FAERS Safety Report 7815454-8 (Version None)
Quarter: 2011Q4

REPORT INFORMATION
  Report Type: 
  Country: None (occurrence: None)
  Receive Date: 20111014
  Receipt Date: 20100324
  Transmission Date: 20120403
  Serious: No
  Sender: FDA-Public Use
  Company Number: US-BAYER-201017727NA

PATIENT

DRUGS (6)
  1. OXYCONTIN [Concomitant]
  2. DECADRON [Concomitant]
  3. NEXAVAR [Suspect]
     Indication: METASTATIC RENAL CELL CARCINOMA
     Dosage: 400 MG, BID
     Dates: start: 20100222
  4. VICODIN [Concomitant]
  5. PEPCID [Concomitant]
  6. LAXATIVES [Concomitant]

REACTIONS (1)
  - SKIN PAPILLOMA [None]
